FAERS Safety Report 14305673 (Version 3)
Quarter: 2018Q1

REPORT INFORMATION
  Report Type: Spontaneous
  Country: US (occurrence: US)
  Receive Date: 20171219
  Receipt Date: 20180215
  Transmission Date: 20180509
  Serious: Yes (Other)
  Sender: FDA-Public Use
  Company Number: US-OTSUKA-2017_021610

PATIENT
  Sex: Female

DRUGS (5)
  1. VITAMIN B12 [Concomitant]
     Active Substance: CYANOCOBALAMIN
     Indication: PRODUCT USED FOR UNKNOWN INDICATION
     Dosage: UNK
     Route: 065
  2. ASPIRIN. [Concomitant]
     Active Substance: ASPIRIN
     Indication: PRODUCT USED FOR UNKNOWN INDICATION
     Dosage: UNK
     Route: 065
  3. LISINOPRIL. [Concomitant]
     Active Substance: LISINOPRIL
     Indication: HYPERTENSION
     Dosage: UNK
     Route: 065
  4. VITAMIN B 1-6-12 [Concomitant]
     Active Substance: CYANOCOBALAMIN\PYRIDOXINE\THIAMINE
     Indication: PRODUCT USED FOR UNKNOWN INDICATION
     Dosage: UNK
     Route: 065
  5. ABILIFY [Suspect]
     Active Substance: ARIPIPRAZOLE
     Indication: FIBROMYALGIA
     Dosage: 2 MG, BID
     Route: 065
     Dates: start: 2016, end: 2016

REACTIONS (14)
  - Obsessive-compulsive disorder [Recovering/Resolving]
  - Weight increased [Recovered/Resolved]
  - Suicidal ideation [Unknown]
  - Memory impairment [Recovering/Resolving]
  - Off label use [Unknown]
  - Phobia of driving [Unknown]
  - Fear [Recovering/Resolving]
  - Blood glucose increased [Unknown]
  - Product use in unapproved indication [Unknown]
  - Emotional disorder [Unknown]
  - Panic attack [Unknown]
  - Weight decreased [Unknown]
  - Emotional distress [Unknown]
  - Nightmare [Unknown]

NARRATIVE: CASE EVENT DATE: 2016
